FAERS Safety Report 6911681-2 (Version None)
Quarter: 2010Q3

REPORT INFORMATION
  Report Type: 
  Country: None (occurrence: None)
  Receive Date: 20100806
  Receipt Date: 20100726
  Transmission Date: 20110219
  Serious: Yes (Other)
  Sender: FDA-Public Use
  Company Number: US-WYE-H16480510

PATIENT
  Sex: Female

DRUGS (3)
  1. PRISTIQ [Suspect]
     Indication: DEPRESSION
     Dosage: UNKNOWN DOSE
     Route: 048
     Dates: start: 20090101, end: 20090101
  2. MIRTAZAPINE [Concomitant]
     Dosage: UNKNOWN
     Dates: end: 20090101
  3. CAFFEINE [Suspect]
     Dosage: 2-3 OUNCES IN TEA OR DIET PEPSI PER DAY

REACTIONS (5)
  - DEHYDRATION [None]
  - DRUG WITHDRAWAL SYNDROME [None]
  - MAJOR DEPRESSION [None]
  - SUICIDAL IDEATION [None]
  - UNEVALUABLE EVENT [None]
